FAERS Safety Report 18223886 (Version 2)
Quarter: 2020Q3

REPORT INFORMATION
  Report Type: Spontaneous
  Country: US (occurrence: US)
  Receive Date: 20200902
  Receipt Date: 20200911
  Transmission Date: 20201103
  Serious: Yes (Hospitalization, Other)
  Sender: FDA-Public Use
  Company Number: US-TEVA-2020-US-1822864

PATIENT
  Sex: Male

DRUGS (1)
  1. GABAPENTIN AMNEAL [Suspect]
     Active Substance: GABAPENTIN
     Indication: NECK PAIN
     Dosage: ONCE IN THE AFTERNOON AND THE OTHER IN THE EVENING
     Route: 065
     Dates: start: 20200710

REACTIONS (3)
  - Pharyngeal swelling [Unknown]
  - Haematemesis [Unknown]
  - Enlarged uvula [Recovered/Resolved]
